FAERS Safety Report 6259423-0 (Version None)
Quarter: 2009Q3

REPORT INFORMATION
  Report Type: 
  Country: None (occurrence: None)
  Receive Date: 20090707
  Receipt Date: 20090629
  Transmission Date: 20100115
  Serious: Yes (Other)
  Sender: FDA-Public Use
  Company Number: US-JNJCH-2009017810

PATIENT
  Age: 63 Year
  Sex: Female
  Weight: 78 kg

DRUGS (5)
  1. ROGAINE [Suspect]
     Indication: ALOPECIA
     Dosage: TEXT:LESS THAN 1ML 1X
     Route: 061
     Dates: start: 20090627, end: 20090627
  2. COSOPT [Concomitant]
     Indication: GLAUCOMA
     Dosage: TEXT: 5 MG 2 X A DAY
     Route: 065
  3. GANFORT [Concomitant]
     Indication: GLAUCOMA
     Dosage: TEXT: 5 MG 1 X A DAY
     Route: 065
  4. LEVOTHROID [Concomitant]
     Indication: THYROID DISORDER
     Dosage: TEXT:100 MG 1 X A DAY
     Route: 065
  5. METFORMIN [Concomitant]
     Indication: DRUG USE FOR UNKNOWN INDICATION
     Dosage: TEXT:850 MG WHEN NEEDED
     Route: 065

REACTIONS (7)
  - ABDOMINAL PAIN UPPER [None]
  - BACK PAIN [None]
  - DIZZINESS [None]
  - DYSSTASIA [None]
  - HEADACHE [None]
  - NAUSEA [None]
  - PALLOR [None]
